FAERS Safety Report 9478616 (Version 1)
Quarter: 2013Q3

REPORT INFORMATION
  Report Type: Spontaneous
  Country: DE (occurrence: DE)
  Receive Date: 20130827
  Receipt Date: 20130827
  Transmission Date: 20140515
  Serious: Yes (Other)
  Sender: FDA-Public Use
  Company Number: DE-PFIZER INC-2013247164

PATIENT
  Sex: Female

DRUGS (1)
  1. RAMILICH [Suspect]
     Dosage: 2.5 MG, UNK
     Route: 048

REACTIONS (2)
  - Circulatory collapse [Unknown]
  - Loss of consciousness [Unknown]
